FAERS Safety Report 10232486 (Version 1)
Quarter: 2014Q2

REPORT INFORMATION
  Report Type: Report from Study
  Country: US (occurrence: US)
  Receive Date: 20140612
  Receipt Date: 20140612
  Transmission Date: 20141212
  Serious: Yes (Hospitalization)
  Sender: FDA-Public Use
  Company Number: US-JNJFOC-20140603332

PATIENT
  Sex: Female
  Weight: 81.65 kg

DRUGS (14)
  1. REMICADE [Suspect]
     Indication: CROHN^S DISEASE
     Route: 042
     Dates: start: 2013
  2. REMICADE [Suspect]
     Indication: ARTHRITIS
     Route: 042
     Dates: start: 2013
  3. ASACOL [Concomitant]
     Indication: CROHN^S DISEASE
     Route: 065
     Dates: start: 2009
  4. LISINOPRIL [Concomitant]
     Indication: HYPERTENSION
     Dosage: 20/12.5 MG
     Route: 048
     Dates: start: 2009
  5. LASIX [Concomitant]
     Indication: SWELLING
     Route: 048
     Dates: start: 2010
  6. CRESTOR [Concomitant]
     Indication: BLOOD CHOLESTEROL INCREASED
     Route: 048
     Dates: start: 2010
  7. VITAMIN E (TOCOPHERYL ACETATE) [Concomitant]
     Route: 048
     Dates: start: 2012
  8. PROTONIX [Concomitant]
     Indication: GASTROOESOPHAGEAL REFLUX DISEASE
     Route: 048
     Dates: start: 2008
  9. CYMBALTA [Concomitant]
     Indication: ANXIETY
     Route: 048
     Dates: start: 2009
  10. HYDROCODONE [Concomitant]
     Indication: ANXIETY
     Route: 048
     Dates: start: 2010
  11. CELEBREX [Concomitant]
     Indication: INFLAMMATION
     Route: 048
     Dates: start: 2004
  12. FOLIC ACID [Concomitant]
     Route: 048
     Dates: start: 2004
  13. LEFLUNOMIDE [Concomitant]
     Indication: ARTHRITIS
     Route: 048
     Dates: start: 201405
  14. MELATONIN [Concomitant]
     Indication: SLEEP DISORDER
     Route: 048

REACTIONS (8)
  - Rotator cuff syndrome [Recovered/Resolved]
  - Pancreatitis [Not Recovered/Not Resolved]
  - Dehydration [Recovered/Resolved]
  - Vision blurred [Not Recovered/Not Resolved]
  - Dry skin [Not Recovered/Not Resolved]
  - Abnormal loss of weight [Not Recovered/Not Resolved]
  - Erythema [Not Recovered/Not Resolved]
  - Rash [Not Recovered/Not Resolved]
